FAERS Safety Report 13990333 (Version 1)
Quarter: 2017Q3

REPORT INFORMATION
  Report Type: Report from Study
  Country: US (occurrence: US)
  Receive Date: 20170920
  Receipt Date: 20170920
  Transmission Date: 20171128
  Serious: No
  Sender: FDA-Public Use
  Company Number: PHEH2017US030198

PATIENT
  Age: 56 Year

DRUGS (1)
  1. COSENTYX [Suspect]
     Active Substance: SECUKINUMAB
     Indication: PRODUCT USED FOR UNKNOWN INDICATION
     Dosage: 150 MG, QW
     Route: 058
     Dates: start: 20170901

REACTIONS (6)
  - Dyspnoea [Unknown]
  - Arthralgia [Unknown]
  - Urine analysis abnormal [Unknown]
  - Cough [Unknown]
  - Eye pain [Unknown]
  - Back pain [Unknown]

NARRATIVE: CASE EVENT DATE: 20170914
